FAERS Safety Report 23980774 (Version 1)
Quarter: 2024Q2

REPORT INFORMATION
  Report Type: Spontaneous
  Country: DE (occurrence: DE)
  Receive Date: 20240617
  Receipt Date: 20240617
  Transmission Date: 20240716
  Serious: Yes (Other)
  Sender: FDA-Public Use
  Company Number: DE-STRIDES ARCOLAB LIMITED-2024SP006932

PATIENT

DRUGS (2)
  1. ETOPOSIDE [Suspect]
     Active Substance: ETOPOSIDE
     Indication: Glioblastoma
     Dosage: UNK
     Route: 065
  2. TROFOSFAMIDE [Suspect]
     Active Substance: TROFOSFAMIDE
     Indication: Glioblastoma
     Dosage: UNK
     Route: 065

REACTIONS (2)
  - Pulmonary embolism [Unknown]
  - Off label use [Unknown]
